FAERS Safety Report 8450520-8 (Version None)
Quarter: 2012Q2

REPORT INFORMATION
  Report Type: 
  Country: None (occurrence: None)
  Receive Date: 20120620
  Receipt Date: 20120618
  Transmission Date: 20120825
  Serious: No
  Sender: FDA-Public Use
  Company Number: US-PFIZER INC-2012146654

PATIENT
  Sex: Female
  Weight: 68.1 kg

DRUGS (7)
  1. ADVAIR DISKUS 100/50 [Concomitant]
     Indication: ASTHMA
     Dosage: 500 MG/50 MG, UNK
     Dates: start: 20040101
  2. PROTONIX [Suspect]
     Indication: GASTROOESOPHAGEAL REFLUX DISEASE
     Dosage: 40 MG, DAILY
     Dates: start: 20120601, end: 20120601
  3. PROTONIX [Suspect]
     Dosage: 40 MG, DAILY
     Dates: start: 20120615, end: 20120617
  4. LORAZEPAM [Concomitant]
     Indication: BIPOLAR DISORDER
     Dosage: 0.5 MG, DAILY AT BED TIME
  5. THORAZINE [Concomitant]
     Indication: BIPOLAR DISORDER
     Dosage: 50 MG, DAILY AT BED TIME
  6. LAMICTAL [Concomitant]
     Indication: BIPOLAR DISORDER
     Dosage: 100 MG, UNK
     Route: 048
  7. COMBIVENT [Concomitant]
     Indication: ASTHMA
     Dosage: UNK
     Dates: start: 20040101

REACTIONS (1)
  - CHEST PAIN [None]
